FAERS Safety Report 12139439 (Version 1)
Quarter: 2016Q1

REPORT INFORMATION
  Report Type: Spontaneous
  Country: US (occurrence: US)
  Receive Date: 20160303
  Receipt Date: 20160303
  Transmission Date: 20160526
  Serious: Yes (Hospitalization)
  Sender: FDA-Public Use
  Company Number: US-BEH-2016059254

PATIENT
  Sex: Female
  Weight: 63 kg

DRUGS (31)
  1. PREDNISONE. [Concomitant]
     Active Substance: PREDNISONE
  2. LIDOCAINE. [Concomitant]
     Active Substance: LIDOCAINE
  3. NORCO [Concomitant]
     Active Substance: ACETAMINOPHEN\HYDROCODONE BITARTRATE
  4. LIDOCAINE. [Concomitant]
     Active Substance: LIDOCAINE
  5. PYRIDOXINE [Concomitant]
     Active Substance: PYRIDOXINE
  6. AZITHROMYCIN ANHYDROUS. [Concomitant]
     Active Substance: AZITHROMYCIN ANHYDROUS
  7. FISH OIL [Concomitant]
     Active Substance: FISH OIL
  8. GLUCOSAMINE [Concomitant]
     Active Substance: GLUCOSAMINE
  9. ZEMAIRA [Suspect]
     Active Substance: .ALPHA.1-PROTEINASE INHIBITOR HUMAN
     Indication: ALPHA-1 ANTI-TRYPSIN DEFICIENCY
     Route: 042
     Dates: start: 20111004
  10. PROAIR HFA [Concomitant]
     Active Substance: ALBUTEROL SULFATE
  11. PYRIDOXINE [Concomitant]
     Active Substance: PYRIDOXINE
  12. OMEPRAZOLE. [Concomitant]
     Active Substance: OMEPRAZOLE
  13. XOPENEX [Concomitant]
     Active Substance: LEVALBUTEROL HYDROCHLORIDE
  14. SODIUM CHLORIDE. [Concomitant]
     Active Substance: SODIUM CHLORIDE
  15. EPIPEN [Concomitant]
     Active Substance: EPINEPHRINE
  16. GABAPENTIN. [Concomitant]
     Active Substance: GABAPENTIN
  17. TIZANIDINE. [Concomitant]
     Active Substance: TIZANIDINE
  18. GARLIC. [Concomitant]
     Active Substance: GARLIC
  19. BIOTIN [Concomitant]
     Active Substance: BIOTIN
  20. SYMBICORT [Concomitant]
     Active Substance: BUDESONIDE\FORMOTEROL FUMARATE DIHYDRATE
  21. FENTANYL. [Concomitant]
     Active Substance: FENTANYL
  22. DIPHENHYDRAMINE. [Concomitant]
     Active Substance: DIPHENHYDRAMINE
  23. BUSPIRONE [Concomitant]
     Active Substance: BUSPIRONE HYDROCHLORIDE
  24. SOLU-MEDROL [Concomitant]
     Active Substance: METHYLPREDNISOLONE SODIUM SUCCINATE
  25. VOLTAREN [Concomitant]
     Active Substance: DICLOFENAC SODIUM
  26. SPIRIVA [Concomitant]
     Active Substance: TIOTROPIUM BROMIDE MONOHYDRATE
  27. ALBUTEROL. [Concomitant]
     Active Substance: ALBUTEROL
  28. VITAMINE B [Concomitant]
  29. FLONASE [Concomitant]
     Active Substance: FLUTICASONE PROPIONATE
  30. CALCIUM [Concomitant]
     Active Substance: CALCIUM
  31. HYDROCHLORTHIAZIDE [Concomitant]
     Active Substance: HYDROCHLOROTHIAZIDE

REACTIONS (2)
  - Cerebrovascular accident [Unknown]
  - Pulmonary thrombosis [Unknown]
